FAERS Safety Report 5806424-X (Version None)
Quarter: 2008Q3

REPORT INFORMATION
  Report Type: 
  Country: None (occurrence: None)
  Receive Date: 20080710
  Receipt Date: 20080125
  Transmission Date: 20090109
  Serious: Yes (Death)
  Sender: FDA-Public Use
  Company Number: US-ROCHE-543664

PATIENT
  Age: 20 Year

DRUGS (3)
  1. DIAZEPAM [Suspect]
     Indication: DRUG USE FOR UNKNOWN INDICATION
     Dosage: ROUTE REPORTED AS ING.
     Route: 048
  2. METHADON HCL TAB [Suspect]
     Indication: DRUG USE FOR UNKNOWN INDICATION
     Dosage: ROUTE REPORTED AS ING.
     Route: 048
  3. ISOPROPYL ALCOHOL COMPOUND LIQUID [Suspect]
     Indication: DRUG USE FOR UNKNOWN INDICATION
     Dosage: ROUTE REPORTED AS ING.
     Route: 048

REACTIONS (3)
  - CARDIAC ARREST [None]
  - DRUG ABUSE [None]
  - RESPIRATORY ARREST [None]
